FAERS Safety Report 21014212 (Version 2)
Quarter: 2022Q3

REPORT INFORMATION
  Report Type: Spontaneous
  Country: FR (occurrence: FR)
  Receive Date: 20220627
  Receipt Date: 20220701
  Transmission Date: 20221027
  Serious: Yes (Other)
  Sender: FDA-Public Use
  Company Number: FR-GILEAD-2022-0585082

PATIENT
  Sex: Female
  Weight: 72 kg

DRUGS (1)
  1. TRODELVY [Interacting]
     Active Substance: SACITUZUMAB GOVITECAN-HZIY
     Indication: Product used for unknown indication
     Dosage: 10 MG/KG C1D1 AND D8
     Route: 042
     Dates: start: 20220524

REACTIONS (3)
  - Liver disorder [Not Recovered/Not Resolved]
  - Acidosis [Recovering/Resolving]
  - Drug interaction [Unknown]

NARRATIVE: CASE EVENT DATE: 20220530
